FAERS Safety Report 23595945 (Version 1)
Quarter: 2024Q1

REPORT INFORMATION
  Report Type: Spontaneous
  Country: US (occurrence: None)
  Receive Date: 20240304
  Receipt Date: 20240304
  Transmission Date: 20240409
  Serious: Yes (unspecified)
  Sender: FDA-Public Use
  Company Number: None

PATIENT
  Age: 23 Year
  Sex: Male
  Weight: 56.2 kg

DRUGS (1)
  1. INFLECTRA [Suspect]
     Active Substance: INFLIXIMAB-DYYB

REACTIONS (7)
  - Hypersensitivity [None]
  - Insurance issue [None]
  - Rash [None]
  - Pruritus [None]
  - Drug specific antibody [None]
  - Product dose omission issue [None]
  - Iron deficiency anaemia [None]

NARRATIVE: CASE EVENT DATE: 20240301
